FAERS Safety Report 26121785 (Version 1)
Quarter: 2025Q4

REPORT INFORMATION
  Report Type: Spontaneous
  Country: GB (occurrence: GB)
  Receive Date: 20251204
  Receipt Date: 20251204
  Transmission Date: 20260117
  Serious: Yes (Life-Threatening, Hospitalization, Other)
  Sender: Haleon PLC
  Company Number: GB-HALEON-2277466

PATIENT
  Age: 41 Year
  Sex: Male

DRUGS (1)
  1. IBUPROFEN [Suspect]
     Active Substance: IBUPROFEN
     Indication: Toothache

REACTIONS (13)
  - Renal tubular acidosis [Unknown]
  - Muscle spasms [Unknown]
  - Asthenia [Unknown]
  - Dizziness [Unknown]
  - Hypokalaemia [Unknown]
  - Acidosis [Recovered/Resolved]
  - Blood bicarbonate decreased [Unknown]
  - Muscular weakness [Unknown]
  - Gastric ulcer [Unknown]
  - Overdose [Unknown]
  - Microcytic anaemia [Unknown]
  - Renal injury [Unknown]
  - Vomiting [Unknown]
